FAERS Safety Report 8240168-2 (Version None)
Quarter: 2012Q1

REPORT INFORMATION
  Report Type: 
  Country: None (occurrence: None)
  Receive Date: 20120328
  Receipt Date: 20111024
  Transmission Date: 20120608
  Serious: No
  Sender: FDA-Public Use
  Company Number: US-PFIZER INC-2011259478

PATIENT
  Sex: Male
  Weight: 90.703 kg

DRUGS (6)
  1. LEXAPRO [Concomitant]
     Indication: POST-TRAUMATIC STRESS DISORDER
     Dosage: 20 MG, DAILY
     Route: 048
  2. SYNTHROID [Concomitant]
     Indication: THYROID DISORDER
     Dosage: 150 UG, DAILY
     Route: 048
  3. VALPROIC ACID [Concomitant]
     Indication: POST-TRAUMATIC STRESS DISORDER
     Dosage: UNK, 2X/DAY
     Route: 048
  4. OXYCODONE HYDROCHLORIDE [Suspect]
     Indication: BACK PAIN
     Dosage: UNK
  5. DICLOFENAC [Concomitant]
     Indication: INFLAMMATION
     Dosage: 550 MG, 2X/DAY
  6. IMITREX [Concomitant]
     Indication: MIGRAINE
     Dosage: UNK, AS NEEDED
     Route: 048

REACTIONS (1)
  - HYPERMETABOLISM [None]
